FAERS Safety Report 5016961-6 (Version None)
Quarter: 2006Q2

REPORT INFORMATION
  Report Type: 
  Country: None (occurrence: None)
  Receive Date: 20060526
  Receipt Date: 20060515
  Transmission Date: 20061013
  Serious: Yes (Hospitalization, Other)
  Sender: FDA-Public Use
  Company Number: US200604000451

PATIENT
  Sex: Female

DRUGS (2)
  1. HUMATROPE [Suspect]
     Dates: start: 20060216
  2. HUMATROPEN (HUMATROPEN) [Concomitant]

REACTIONS (4)
  - BRAIN NEOPLASM [None]
  - CEREBROSPINAL FISTULA [None]
  - DEVICE FAILURE [None]
  - PHARMACEUTICAL PRODUCT COMPLAINT [None]
